FAERS Safety Report 16817695 (Version 1)
Quarter: 2019Q4

REPORT INFORMATION
  Report Type: Spontaneous
  Country: US (occurrence: US)
  Receive Date: 20190917
  Receipt Date: 20190917
  Transmission Date: 20200122
  Serious: Yes (Other)
  Sender: FDA-Public Use
  Company Number: None

PATIENT
  Age: 42 Year
  Sex: Female

DRUGS (6)
  1. AIMOVIG [Suspect]
     Active Substance: ERENUMAB-AOOE
     Indication: MIGRAINE
     Dosage: ?          OTHER FREQUENCY:MONTHLY;?
     Route: 058
     Dates: start: 20190315
  2. PHENTERMINE 37.5 MG [Concomitant]
     Active Substance: PHENTERMINE
  3. PROZAC 40 MG [Concomitant]
  4. WELLBUTRIN XL [Concomitant]
     Active Substance: BUPROPION HYDROCHLORIDE
  5. LEVOTHRYROXINE 0.175 MG [Concomitant]
  6. PREMARIN 0.625 MG [Concomitant]

REACTIONS (1)
  - Injection site pain [None]

NARRATIVE: CASE EVENT DATE: 20190301
